FAERS Safety Report 14982079 (Version 2)
Quarter: 2018Q2

REPORT INFORMATION
  Report Type: Spontaneous
  Country: SE (occurrence: SE)
  Receive Date: 20180607
  Receipt Date: 20180611
  Transmission Date: 20180711
  Serious: Yes (Other)
  Sender: FDA-Public Use
  Company Number: SE-009507513-1806SWE000080

PATIENT
  Age: 47 Year
  Sex: Female
  Weight: 70 kg

DRUGS (4)
  1. FINASTERIDE. [Suspect]
     Active Substance: FINASTERIDE
     Dosage: EXPOSURE VIA SEXUAL PARTNER
     Route: 065
     Dates: start: 20130101, end: 20180424
  2. BEHEPAN [Concomitant]
     Active Substance: HYDROXOCOBALAMIN
     Dosage: UNK
  3. VITAMIN D [Concomitant]
     Active Substance: CHOLECALCIFEROL
     Dosage: VITAMIN D AND ANALOGUES
  4. PREDNISOLONE. [Concomitant]
     Active Substance: PREDNISOLONE
     Dosage: UNK
     Dates: start: 19950101

REACTIONS (2)
  - Vulvovaginal dryness [Recovered/Resolved]
  - Exposure via body fluid [Recovered/Resolved]

NARRATIVE: CASE EVENT DATE: 20130101
